FAERS Safety Report 13201382 (Version 5)
Quarter: 2019Q1

REPORT INFORMATION
  Report Type: Report from Study
  Country: GB (occurrence: GB)
  Receive Date: 20170209
  Receipt Date: 20190124
  Transmission Date: 20190417
  Serious: Yes (Hospitalization, Other)
  Sender: FDA-Public Use
  Company Number: GB-BRISTOL-MYERS SQUIBB COMPANY-BMS-2016-039848

PATIENT
  Sex: Female

DRUGS (1)
  1. ABATACEPT [Suspect]
     Active Substance: ABATACEPT
     Indication: RHEUMATOID ARTHRITIS
     Dosage: 125 MG, QWK
     Route: 058
     Dates: start: 20151221

REACTIONS (8)
  - Surgery [Unknown]
  - Arthropathy [Unknown]
  - Hypoacusis [Unknown]
  - Weight bearing difficulty [Unknown]
  - Product storage error [Unknown]
  - Contusion [Unknown]
  - Fall [Unknown]
  - Pruritus [Unknown]
